FAERS Safety Report 21774118 (Version 1)
Quarter: 2022Q4

REPORT INFORMATION
  Report Type: Spontaneous
  Country: IT (occurrence: IT)
  Receive Date: 20221223
  Receipt Date: 20221223
  Transmission Date: 20230113
  Serious: Yes (Death, Other)
  Sender: FDA-Public Use
  Company Number: IT-GILEAD-2022-0610619

PATIENT
  Age: 66 Year

DRUGS (1)
  1. YESCARTA [Suspect]
     Active Substance: AXICABTAGENE CILOLEUCEL
     Indication: Follicular lymphoma
     Dosage: UNK
     Route: 065
     Dates: start: 20220426, end: 20220426

REACTIONS (3)
  - Death [Fatal]
  - Cytopenia [Unknown]
  - Infection [Unknown]

NARRATIVE: CASE EVENT DATE: 20220729
